FAERS Safety Report 20975230 (Version 7)
Quarter: 2025Q3

REPORT INFORMATION
  Report Type: Spontaneous
  Country: CA (occurrence: CA)
  Receive Date: 20220617
  Receipt Date: 20250711
  Transmission Date: 20251021
  Serious: Yes (Other)
  Sender: BAUSCH AND LOMB
  Company Number: CA-BAUSCH-BL-2022-014935

PATIENT
  Age: 70 Year
  Sex: Male

DRUGS (33)
  1. BUDESONIDE [Suspect]
     Active Substance: BUDESONIDE
     Indication: Product used for unknown indication
     Route: 065
  2. BUDESONIDE [Suspect]
     Active Substance: BUDESONIDE
     Indication: Product used for unknown indication
     Route: 065
  3. ALBUTEROL [Suspect]
     Active Substance: ALBUTEROL
     Indication: Product used for unknown indication
     Route: 065
  4. ATROVENT [Suspect]
     Active Substance: IPRATROPIUM BROMIDE
     Indication: Product used for unknown indication
     Route: 065
  5. ATROVENT [Suspect]
     Active Substance: IPRATROPIUM BROMIDE
     Route: 065
  6. ATROVENT [Suspect]
     Active Substance: IPRATROPIUM BROMIDE
     Route: 065
  7. COVID-19 VACCINE NOS [Suspect]
     Active Substance: COVID-19 VACCINE
     Indication: COVID-19 prophylaxis
     Route: 065
  8. ELIGARD [Suspect]
     Active Substance: LEUPROLIDE ACETATE
     Indication: Prostate cancer
     Route: 058
  9. NUCALA [Suspect]
     Active Substance: MEPOLIZUMAB
     Indication: Asthma
     Route: 058
     Dates: start: 20190307
  10. NUCALA [Suspect]
     Active Substance: MEPOLIZUMAB
     Indication: Asthma
     Route: 058
  11. PREDNISONE [Suspect]
     Active Substance: PREDNISONE
     Indication: Product used for unknown indication
     Route: 065
     Dates: start: 20160616
  12. PREDNISONE [Suspect]
     Active Substance: PREDNISONE
     Route: 065
     Dates: start: 20210612
  13. PREDNISONE [Suspect]
     Active Substance: PREDNISONE
     Route: 065
  14. PREDNISONE [Suspect]
     Active Substance: PREDNISONE
     Route: 065
  15. PREDNISONE [Suspect]
     Active Substance: PREDNISONE
     Route: 065
  16. PREDNISONE [Suspect]
     Active Substance: PREDNISONE
     Route: 065
  17. PREDNISONE [Suspect]
     Active Substance: PREDNISONE
     Route: 065
  18. PREDNISONE [Suspect]
     Active Substance: PREDNISONE
     Dosage: 2 ADMINISTRATIONS
     Route: 065
  19. SPIRIVA [Suspect]
     Active Substance: TIOTROPIUM BROMIDE MONOHYDRATE
     Indication: Product used for unknown indication
     Route: 065
  20. SPIRIVA [Suspect]
     Active Substance: TIOTROPIUM BROMIDE MONOHYDRATE
     Route: 065
  21. VENTOLIN [Suspect]
     Active Substance: ALBUTEROL SULFATE
     Indication: Product used for unknown indication
     Route: 065
  22. VENTOLIN [Suspect]
     Active Substance: ALBUTEROL SULFATE
     Route: 065
  23. BUDESONIDE\FORMOTEROL FUMARATE [Suspect]
     Active Substance: BUDESONIDE\FORMOTEROL FUMARATE
     Indication: Product used for unknown indication
     Route: 065
  24. MEPOLIZUMAB [Suspect]
     Active Substance: MEPOLIZUMAB
     Indication: Product used for unknown indication
     Route: 058
  25. MEPOLIZUMAB [Suspect]
     Active Substance: MEPOLIZUMAB
     Indication: Asthma
     Dosage: 3 ADMINISTRATIONS
     Route: 058
  26. VAXZEVRIA [Suspect]
     Active Substance: AZD-1222
     Indication: COVID-19 prophylaxis
     Route: 030
  27. VENTOLIN [Suspect]
     Active Substance: ALBUTEROL SULFATE
     Indication: Product used for unknown indication
     Route: 065
  28. VENTOLIN [Suspect]
     Active Substance: ALBUTEROL SULFATE
     Route: 065
  29. VENTOLIN [Suspect]
     Active Substance: ALBUTEROL SULFATE
     Route: 065
  30. AZD-1222 [Suspect]
     Active Substance: AZD-1222
     Indication: COVID-19 prophylaxis
     Route: 030
  31. PULMICORT TURBUHALER [Suspect]
     Active Substance: BUDESONIDE
     Indication: Product used for unknown indication
     Route: 065
  32. STERILE WATER [Concomitant]
     Active Substance: WATER
     Indication: Vehicle solution use
     Route: 055
  33. STERILE WATER [Concomitant]
     Active Substance: WATER
     Route: 055

REACTIONS (8)
  - Contusion [Unknown]
  - Cardiac failure congestive [Unknown]
  - Dyspnoea [Unknown]
  - Dyspnoea exertional [Unknown]
  - Heart rate increased [Unknown]
  - Prostate cancer [Unknown]
  - Use of accessory respiratory muscles [Unknown]
  - Wheezing [Unknown]
